FAERS Safety Report 7762695-4 (Version None)
Quarter: 2011Q3

REPORT INFORMATION
  Report Type: 
  Country: None (occurrence: None)
  Receive Date: 20110920
  Receipt Date: 20110909
  Transmission Date: 20111222
  Serious: Yes (Other)
  Sender: FDA-Public Use
  Company Number: US-JNJFOC-20110904854

PATIENT
  Age: 88 Year
  Sex: Female
  Weight: 59.42 kg

DRUGS (3)
  1. EXTRA STRENGTH TYLENOL PM [Suspect]
     Indication: ARTHRITIS
     Route: 048
     Dates: end: 20110908
  2. LOPRESSOR [Concomitant]
     Indication: HYPERTENSION
     Route: 065
  3. EXTRA STRENGTH TYLENOL PM [Suspect]
     Indication: SLEEP DISORDER THERAPY
     Route: 048
     Dates: end: 20110908

REACTIONS (1)
  - HALLUCINATION [None]
